FAERS Safety Report 7307795-8 (Version None)
Quarter: 2011Q1

REPORT INFORMATION
  Report Type: 
  Country: None (occurrence: None)
  Receive Date: 20110223
  Receipt Date: 20110216
  Transmission Date: 20110831
  Serious: Yes (Other)
  Sender: FDA-Public Use
  Company Number: US-AMGEN-USASP2011009283

PATIENT
  Age: 57 Year
  Sex: Female

DRUGS (1)
  1. ENBREL [Suspect]
     Indication: RHEUMATOID ARTHRITIS
     Dates: start: 20090520, end: 20110119

REACTIONS (5)
  - MUSCLE TWITCHING [None]
  - MYALGIA [None]
  - FATIGUE [None]
  - HYPERTENSION [None]
  - PAIN [None]
